FAERS Safety Report 4295124-6 (Version None)
Quarter: 2004Q1

REPORT INFORMATION
  Report Type: 
  Country: None (occurrence: None)
  Receive Date: 20040211
  Receipt Date: 20040121
  Transmission Date: 20041129
  Serious: Yes (Hospitalization, Other)
  Sender: FDA-Public Use
  Company Number: JP_040102561

PATIENT
  Age: 11 Year
  Sex: Female
  Weight: 46 kg

DRUGS (7)
  1. ONCOVIN [Suspect]
     Indication: B PRECURSOR TYPE ACUTE LEUKAEMIA
  2. CYCLOPHOSPHAMIDE [Concomitant]
  3. DAUNOMYCIN [Concomitant]
  4. ELSPAR [Concomitant]
  5. PREDNISOLONE [Concomitant]
  6. DEXAMETHASONE [Concomitant]
  7. DOXORUBICIN HCL [Concomitant]

REACTIONS (13)
  - ASEPTIC NECROSIS BONE [None]
  - BRONCHIAL OBSTRUCTION [None]
  - BRONCHIECTASIS [None]
  - BRONCHOPULMONARY ASPERGILLOSIS ALLERGIC [None]
  - BRONCHOSTENOSIS [None]
  - CANDIDIASIS [None]
  - GRANULOCYTOPENIA [None]
  - HEPATIC STEATOSIS [None]
  - HYPERLIPIDAEMIA [None]
  - LUNG CONSOLIDATION [None]
  - PULMONARY OEDEMA [None]
  - PYREXIA [None]
  - SPUTUM DISCOLOURED [None]
